FAERS Safety Report 6490739-9 (Version None)
Quarter: 2009Q4

REPORT INFORMATION
  Report Type: 
  Country: None (occurrence: None)
  Receive Date: 20091124
  Receipt Date: 20090422
  Transmission Date: 20100525
  Serious: Yes (Other)
  Sender: FDA-Public Use
  Company Number: 281935

PATIENT
  Sex: Female

DRUGS (1)
  1. HERCEPTIN [Suspect]
     Indication: BREAST CANCER
     Dates: end: 20070608

REACTIONS (3)
  - BREAST CANCER [None]
  - BREAST CANCER METASTATIC [None]
  - DRUG INEFFECTIVE [None]
